FAERS Safety Report 4371043-1 (Version None)
Quarter: 2004Q2

REPORT INFORMATION
  Report Type: 
  Country: None (occurrence: None)
  Receive Date: 20040604
  Receipt Date: 20040427
  Transmission Date: 20050107
  Serious: Yes (Hospitalization)
  Sender: FDA-Public Use
  Company Number: JP-MERCK-0404USA02599

PATIENT
  Age: 12 Year
  Sex: Female

DRUGS (15)
  1. ALLOPURINOL [Concomitant]
     Indication: HYPERURICAEMIA
     Route: 065
     Dates: start: 20020118, end: 20020330
  2. AMPHOTERICIN B [Concomitant]
     Indication: IMMUNODEFICIENCY
     Route: 065
     Dates: start: 20020130, end: 20020330
  3. ELSPAR [Suspect]
     Indication: NON-HODGKIN'S LYMPHOMA
     Route: 041
     Dates: start: 20020126, end: 20020211
  4. BLOOD CELLS, RED [Concomitant]
     Route: 065
     Dates: start: 20020130, end: 20020310
  5. BLOOD, PLASMA [Concomitant]
     Route: 065
     Dates: start: 20020130, end: 20020310
  6. CYCLOPHOSPHAMIDE [Suspect]
     Indication: NON-HODGKIN'S LYMPHOMA
     Route: 041
     Dates: start: 20020118, end: 20020304
  7. CYTARABINE [Suspect]
     Indication: NON-HODGKIN'S LYMPHOMA
     Route: 051
     Dates: start: 20020118, end: 20020312
  8. DECADRON [Suspect]
     Indication: NON-HODGKIN'S LYMPHOMA
     Route: 041
     Dates: start: 20020118, end: 20020124
  9. ADRIAMYCIN PFS [Suspect]
     Indication: NON-HODGKIN'S LYMPHOMA
     Route: 041
     Dates: start: 20020119, end: 20020307
  10. SOLU-CORTEF [Suspect]
     Indication: NON-HODGKIN'S LYMPHOMA
     Route: 051
     Dates: start: 20020118, end: 20020312
  11. METHOTREXATE [Suspect]
     Indication: NON-HODGKIN'S LYMPHOMA
     Route: 051
     Dates: start: 20020118, end: 20020312
  12. POLYMYXIN B SULFATE [Concomitant]
     Indication: IMMUNODEFICIENCY
     Route: 065
     Dates: start: 20020118, end: 20020330
  13. PREDNISOLONE [Suspect]
     Indication: NON-HODGKIN'S LYMPHOMA
     Route: 048
     Dates: start: 20020112, end: 20020220
  14. SULFAMETHOXAZOLE AND TRIMETHOPRIM [Concomitant]
     Indication: IMMUNODEFICIENCY
     Route: 065
     Dates: start: 20020130
  15. VINCRISTINE SULFATE [Suspect]
     Indication: NON-HODGKIN'S LYMPHOMA
     Route: 041
     Dates: start: 20020118, end: 20020311

REACTIONS (1)
  - LEUKOENCEPHALOPATHY [None]
